FAERS Safety Report 13024538 (Version 7)
Quarter: 2020Q3

REPORT INFORMATION
  Report Type: Spontaneous
  Country: FR (occurrence: FR)
  Receive Date: 20161213
  Receipt Date: 20200925
  Transmission Date: 20201102
  Serious: Yes (Hospitalization, Other)
  Sender: FDA-Public Use
  Company Number: FR-ALEXION PHARMACEUTICALS INC.-A201609702

PATIENT
  Age: 2 Month
  Sex: Female

DRUGS (28)
  1. SOLIRIS [Suspect]
     Active Substance: ECULIZUMAB
     Indication: HAEMOLYTIC URAEMIC SYNDROME
  2. VITAMIN D                          /00107901/ [Concomitant]
     Active Substance: ERGOCALCIFEROL
     Indication: PRODUCT USED FOR UNKNOWN INDICATION
     Dosage: 200000 IU, /3 MONTH
     Route: 065
  3. ENALAPRIL [Concomitant]
     Active Substance: ENALAPRIL
     Indication: PRODUCT USED FOR UNKNOWN INDICATION
     Route: 065
  4. SIMULECT [Concomitant]
     Active Substance: BASILIXIMAB
     Indication: IMMUNOSUPPRESSION
     Route: 065
  5. VITAMIN A                          /00056001/ [Concomitant]
     Active Substance: RETINOL
     Indication: PRODUCT USED FOR UNKNOWN INDICATION
     Dosage: 50000 IU, QMONTH
     Route: 065
  6. AZITHROMYCINE [Concomitant]
     Active Substance: AZITHROMYCIN
     Indication: PRODUCT USED FOR UNKNOWN INDICATION
     Dosage: 3 DAYS
     Route: 065
     Dates: start: 201608, end: 201608
  7. SUFENTA [Concomitant]
     Active Substance: SUFENTANIL CITRATE
     Indication: SEDATIVE THERAPY
     Dosage: UNK
     Route: 065
  8. CELLCEPT [Concomitant]
     Active Substance: MYCOPHENOLATE MOFETIL\MYCOPHENOLATE MOFETIL HYDROCHLORIDE
     Indication: IMMUNOSUPPRESSION
     Route: 065
  9. BURINEX [Concomitant]
     Active Substance: BUMETANIDE
     Indication: PRODUCT USED FOR UNKNOWN INDICATION
     Dosage: UNK
     Route: 065
  10. SOLIRIS [Suspect]
     Active Substance: ECULIZUMAB
     Indication: ESCHERICHIA TEST POSITIVE
     Dosage: 300 MG, SINGLE
     Route: 042
     Dates: start: 20160816, end: 20160816
  11. SOLIRIS [Suspect]
     Active Substance: ECULIZUMAB
     Indication: OFF LABEL USE
  12. KETAMINE [Concomitant]
     Active Substance: KETAMINE
     Indication: SEDATIVE THERAPY
     Route: 065
  13. TRANXENE [Concomitant]
     Active Substance: CLORAZEPATE DIPOTASSIUM
     Indication: PRODUCT USED FOR UNKNOWN INDICATION
     Route: 065
  14. CATAPRESSAN                        /00171101/ [Suspect]
     Active Substance: CLONIDINE
     Indication: HYPERTENSION
     Route: 065
  15. ALBUMIN [Concomitant]
     Active Substance: ALBUMIN HUMAN
     Indication: HEPATIC CIRRHOSIS
     Dosage: 1G/KG X 3/WEEK (WITH LASILIX IV 1 MG/KG/D IV)
     Route: 065
  16. ALBUMIN [Concomitant]
     Active Substance: ALBUMIN HUMAN
     Indication: HYPOALBUMINAEMIA
  17. CANCIDAS [Concomitant]
     Active Substance: CASPOFUNGIN ACETATE
     Indication: PRODUCT USED FOR UNKNOWN INDICATION
     Dosage: UNK
     Route: 065
  18. SUFENTANIL [Concomitant]
     Active Substance: SUFENTANIL
     Indication: SEDATIVE THERAPY
     Route: 065
  19. METHADONE [Concomitant]
     Active Substance: METHADONE HYDROCHLORIDE
     Indication: PRODUCT USED FOR UNKNOWN INDICATION
     Route: 065
  20. URSOFALK [Concomitant]
     Active Substance: URSODIOL
     Indication: PRODUCT USED FOR UNKNOWN INDICATION
     Dosage: 75 MG, BID
     Route: 065
  21. VITAMIN K [Concomitant]
     Active Substance: PHYTONADIONE
     Indication: PRODUCT USED FOR UNKNOWN INDICATION
     Dosage: 10 MG, QW
     Route: 042
  22. PROPOFOL. [Concomitant]
     Active Substance: PROPOFOL
     Indication: SEDATIVE THERAPY
     Route: 065
  23. HYPNOVEL                           /00634101/ [Concomitant]
     Active Substance: MIDAZOLAM HYDROCHLORIDE
     Indication: SEDATIVE THERAPY
     Dosage: UNK
     Route: 065
  24. AMIKLIN                            /00391001/ [Concomitant]
     Active Substance: AMIKACIN SULFATE
     Indication: PRODUCT USED FOR UNKNOWN INDICATION
     Dosage: UNK
     Route: 065
  25. VANCOMYCIN [Concomitant]
     Active Substance: VANCOMYCIN
     Indication: PRODUCT USED FOR UNKNOWN INDICATION
     Dosage: 7 DAYS
     Route: 065
  26. ORACILLIN                          /00001802/ [Concomitant]
     Active Substance: PENICILLIN V POTASSIUM
     Indication: PRODUCT USED FOR UNKNOWN INDICATION
     Dosage: 3 DAYS
     Route: 065
  27. VEDROP [Concomitant]
     Indication: PRODUCT USED FOR UNKNOWN INDICATION
     Dosage: 1 ML, QD
     Route: 065
  28. GENTAMYCIN                         /00047101/ [Concomitant]
     Active Substance: GENTAMICIN
     Indication: PRODUCT USED FOR UNKNOWN INDICATION
     Dosage: 7 DAYS
     Route: 065

REACTIONS (49)
  - Blood pressure decreased [Unknown]
  - Fluid overload [Unknown]
  - Hepatic cirrhosis [Recovered/Resolved]
  - Anaemia [Unknown]
  - Haematoma [Unknown]
  - Pleural effusion [Unknown]
  - Portal fibrosis [Unknown]
  - Blood bilirubin increased [Unknown]
  - Blood pressure increased [Unknown]
  - Gastrointestinal pain [Unknown]
  - Hypoalbuminaemia [Unknown]
  - Septic shock [Recovered/Resolved]
  - Hepatic enzyme increased [Unknown]
  - Red blood cell count decreased [Unknown]
  - Anuria [Unknown]
  - Staphylococcus test positive [Unknown]
  - Post procedural haemorrhage [Unknown]
  - Drug withdrawal syndrome neonatal [Unknown]
  - Gallbladder enlargement [Unknown]
  - Diarrhoea [Unknown]
  - Cholelithiasis [Recovered/Resolved]
  - Malnutrition [Unknown]
  - Peripheral coldness [Unknown]
  - Renal failure [Unknown]
  - Congestive hepatopathy [Unknown]
  - Respiratory distress [Unknown]
  - Cholangitis sclerosing [Unknown]
  - Proteinuria [Unknown]
  - Off label use [Unknown]
  - Cholestatic liver injury [Not Recovered/Not Resolved]
  - Portal hypertension [Unknown]
  - Haemodynamic instability [Unknown]
  - Hepatic artery aneurysm [Unknown]
  - Heart rate decreased [Unknown]
  - Polyuria [Unknown]
  - Biliary cirrhosis [Unknown]
  - Pyrexia [Unknown]
  - Hypovolaemia [Unknown]
  - Factor I deficiency [Unknown]
  - Metabolic acidosis [Unknown]
  - Cholangitis [Not Recovered/Not Resolved]
  - Thrombocytopenia [Unknown]
  - Abdominal pain [Unknown]
  - Cholestasis [Not Recovered/Not Resolved]
  - Hyperlactacidaemia [Unknown]
  - Vomiting [Unknown]
  - Biliary tract disorder [Unknown]
  - Cell death [Not Recovered/Not Resolved]
  - Pruritus [Unknown]

NARRATIVE: CASE EVENT DATE: 20160816
